FAERS Safety Report 13398412 (Version 2)
Quarter: 2017Q2

REPORT INFORMATION
  Report Type: Spontaneous
  Country: US (occurrence: US)
  Receive Date: 20170403
  Receipt Date: 20170411
  Transmission Date: 20170830
  Serious: Yes (Death, Other)
  Sender: FDA-Public Use
  Company Number: US-ACTELION-A-US2017-151629

PATIENT
  Age: 86 Year
  Sex: Male

DRUGS (1)
  1. TRACLEER [Suspect]
     Active Substance: BOSENTAN
     Indication: PULMONARY ARTERIAL HYPERTENSION
     Dosage: 125 MG, BID
     Route: 048
     Dates: start: 20100928

REACTIONS (8)
  - Renal failure [Fatal]
  - Pneumonia influenzal [Unknown]
  - Azotaemia [Not Recovered/Not Resolved]
  - Cardiac failure congestive [Fatal]
  - Acute kidney injury [Not Recovered/Not Resolved]
  - Cough [Unknown]
  - Thrombocytopenia [Unknown]
  - Dyspnoea [Unknown]
